FAERS Safety Report 5866452-5 (Version None)
Quarter: 2008Q3

REPORT INFORMATION
  Report Type: 
  Country: None (occurrence: None)
  Receive Date: 20080902
  Receipt Date: 20080821
  Transmission Date: 20090109
  Serious: Yes (Death)
  Sender: FDA-Public Use
  Company Number: KR-JNJFOC-20080804805

PATIENT
  Age: 61 Year
  Sex: Female

DRUGS (2)
  1. DURAGESIC-100 [Suspect]
     Dosage: 8X50UG/HR
  2. DURAGESIC-100 [Suspect]
     Indication: CANCER PAIN
     Dosage: STARTED ABOUT 3 YEARS AGO

REACTIONS (1)
  - BREAST CANCER METASTATIC [None]
